FAERS Safety Report 5214898-0 (Version None)
Quarter: 2007Q1

REPORT INFORMATION
  Report Type: 
  Country: None (occurrence: None)
  Receive Date: 20070122
  Receipt Date: 20070122
  Transmission Date: 20070707
  Serious: Yes (Other)
  Sender: FDA-Public Use
  Company Number: None

PATIENT
  Sex: Female

DRUGS (2)
  1. WELLBUTRIN SR [Suspect]
     Indication: DEPRESSION
     Dosage: PO QD
     Route: 048
     Dates: start: 20061127, end: 20061129
  2. DEPO-PROVERA [Suspect]

REACTIONS (2)
  - METRORRHAGIA [None]
  - MUSCLE SPASMS [None]
